FAERS Safety Report 10150336 (Version 1)
Quarter: 2014Q2

REPORT INFORMATION
  Report Type: Spontaneous
  Country: FR (occurrence: FR)
  Receive Date: 20140502
  Receipt Date: 20140502
  Transmission Date: 20141212
  Serious: Yes (Hospitalization)
  Sender: FDA-Public Use
  Company Number: PHHY2014FR050319

PATIENT
  Age: 62 Year
  Sex: Male

DRUGS (2)
  1. ALLOPURINOL [Suspect]
  2. AMOXICILLIN [Suspect]

REACTIONS (17)
  - Autoimmune thyroiditis [Unknown]
  - Goitre [Unknown]
  - Hyperthyroidism [Unknown]
  - Tachycardia [Unknown]
  - Drug reaction with eosinophilia and systemic symptoms [Recovered/Resolved]
  - Lymphadenopathy [Recovered/Resolved]
  - Hepatitis [Recovered/Resolved]
  - Dermatitis exfoliative [Recovered/Resolved]
  - Rash morbilliform [Recovered/Resolved]
  - Purpura [Recovered/Resolved]
  - Face oedema [Recovered/Resolved]
  - Eosinophilia [Recovered/Resolved]
  - Pruritus [Recovered/Resolved]
  - Pyrexia [Recovered/Resolved]
  - Histiocytosis haematophagic [Recovered/Resolved]
  - Pancytopenia [Recovered/Resolved]
  - Anaemia [Recovered/Resolved]
